FAERS Safety Report 13122605 (Version 1)
Quarter: 2017Q1

REPORT INFORMATION
  Report Type: Spontaneous
  Country: US (occurrence: US)
  Receive Date: 20170117
  Receipt Date: 20170117
  Transmission Date: 20170428
  Serious: No
  Sender: FDA-Public Use
  Company Number: US-ALLERGAN-1666490US

PATIENT
  Age: 39 Year
  Sex: Female

DRUGS (2)
  1. ACZONE [Suspect]
     Active Substance: DAPSONE
     Indication: ACNE
     Dosage: UNK
  2. ATRALIN [Concomitant]
     Active Substance: TRETINOIN
     Indication: ACNE
     Dosage: UNK

REACTIONS (1)
  - Acne [Unknown]

NARRATIVE: CASE EVENT DATE: 201510
